FAERS Safety Report 4678735-5 (Version None)
Quarter: 2005Q2

REPORT INFORMATION
  Report Type: 
  Country: None (occurrence: None)
  Receive Date: 20050531
  Receipt Date: 20050520
  Transmission Date: 20051028
  Serious: Yes (Hospitalization)
  Sender: FDA-Public Use
  Company Number: HQWYE827020MAY05

PATIENT
  Age: 76 Year
  Sex: Male
  Weight: 102.15 kg

DRUGS (6)
  1. DRISTAN [Suspect]
     Dosage: 3 DOSES
     Dates: start: 20050401
  2. ALEVE COLD AND SINUS [Suspect]
     Indication: NASOPHARYNGITIS
     Dosage: 220/120 MG (FIVE TIMES BETWEEN START AND STOP DATE), ORAL
     Route: 048
     Dates: start: 20050403, end: 20050410
  3. COUMADIN [Suspect]
     Indication: PROPHYLAXIS
     Dosage: 5 MG ALTERNATING WITH 7.5 MG, ORAL
     Route: 048
     Dates: start: 20050216, end: 20050310
  4. COUMADIN [Suspect]
     Dosage: 5 MG ALTERNATING WITH 7.5 MG, ORAL
     Route: 048
     Dates: start: 20050328, end: 20050415
  5. CALCIUM (CALCIUM) [Concomitant]
  6. LOPID [Concomitant]

REACTIONS (5)
  - DUODENITIS [None]
  - DYSPNOEA [None]
  - FAECES DISCOLOURED [None]
  - HAEMOGLOBIN DECREASED [None]
  - HIATUS HERNIA [None]
